FAERS Safety Report 5383060-3 (Version None)
Quarter: 2007Q3

REPORT INFORMATION
  Report Type: 
  Country: None (occurrence: None)
  Receive Date: 20070705
  Receipt Date: 20070618
  Transmission Date: 20080115
  Serious: Yes (Other)
  Sender: FDA-Public Use
  Company Number: 8025024

PATIENT
  Age: 40 Year
  Sex: Male

DRUGS (2)
  1. KEPPRA [Suspect]
     Indication: EPILEPSY
     Dosage: 1000 MG /D PO
     Route: 048
     Dates: start: 20070501
  2. NUROFEN [Concomitant]

REACTIONS (6)
  - ACNE [None]
  - FATIGUE [None]
  - HEADACHE [None]
  - HERPES ZOSTER OPHTHALMIC [None]
  - SOMNOLENCE [None]
  - STRESS [None]
